FAERS Safety Report 8376051-1 (Version None)
Quarter: 2012Q2

REPORT INFORMATION
  Report Type: 
  Country: None (occurrence: None)
  Receive Date: 20120522
  Receipt Date: 20120514
  Transmission Date: 20120825
  Serious: Yes (Other)
  Sender: FDA-Public Use
  Company Number: PHHY2012CN042243

PATIENT
  Age: 61 Year
  Sex: Male

DRUGS (1)
  1. GLEEVEC [Suspect]
     Indication: CHRONIC MYELOID LEUKAEMIA
     Dosage: 400 MG, QD
     Route: 048
     Dates: start: 20071219

REACTIONS (7)
  - SKIN INJURY [None]
  - MARROW HYPERPLASIA [None]
  - SKIN EXFOLIATION [None]
  - SKIN HYPOPIGMENTATION [None]
  - HYPERKERATOSIS [None]
  - SKIN FISSURES [None]
  - RASH MACULAR [None]
